FAERS Safety Report 10608139 (Version 2)
Quarter: 2014Q4

REPORT INFORMATION
  Report Type: Report from Study
  Country: BR (occurrence: BR)
  Receive Date: 20141125
  Receipt Date: 20141125
  Transmission Date: 20150529
  Serious: Yes (Other)
  Sender: FDA-Public Use
  Company Number: PHHY2013BR103879

PATIENT
  Sex: Male
  Weight: 75 kg

DRUGS (3)
  1. AEROLIN [Concomitant]
     Active Substance: ALBUTEROL
     Indication: ASTHMATIC CRISIS
     Dosage: UNK UKN, UNK
     Route: 065
  2. RITALIN [Suspect]
     Active Substance: METHYLPHENIDATE HYDROCHLORIDE
     Indication: ATTENTION DEFICIT/HYPERACTIVITY DISORDER
     Dosage: 1 DF, QD (IN THE MORNING)
     Route: 048
  3. PRELONE//PREDNISOLONE [Concomitant]
     Indication: PRODUCT USED FOR UNKNOWN INDICATION
     Dosage: UNK UKN, UNK
     Route: 065

REACTIONS (3)
  - Drug ineffective [Recovering/Resolving]
  - Asthmatic crisis [Recovered/Resolved]
  - Sedation [Recovering/Resolving]
